FAERS Safety Report 19646959 (Version 1)
Quarter: 2021Q3

REPORT INFORMATION
  Report Type: Spontaneous
  Country: JP (occurrence: JP)
  Receive Date: 20210802
  Receipt Date: 20210802
  Transmission Date: 20211014
  Serious: Yes (Life-Threatening, Hospitalization)
  Sender: FDA-Public Use
  Company Number: JP-MYLANLABS-2021M1046725

PATIENT
  Sex: Female

DRUGS (3)
  1. PREDNISOLONE. [Suspect]
     Active Substance: PREDNISOLONE
     Indication: CHYLOTHORAX
     Route: 065
  2. POVIDONE?IODINE. [Suspect]
     Active Substance: POVIDONE-IODINE
     Indication: CHYLOTHORAX
     Dosage: CHEMICAL PLEURODESIS OF THE LEFT THORAX WITH 4% POVIDONE?IODINE ON DAY OF LIFE 51 AND 55
     Route: 065
  3. OCTREOTIDE. [Suspect]
     Active Substance: OCTREOTIDE
     Indication: CHYLOTHORAX
     Dosage: DOSE: 1 MCG/KG/H WHICH WAS GRADUALLY INCREASED TO 9 MCG/KG/H. SUBSEQUENTLY, DISCONTINUED ON DAY OF L
     Route: 065

REACTIONS (1)
  - Drug ineffective [Unknown]
